FAERS Safety Report 4651449-3 (Version None)
Quarter: 2005Q2

REPORT INFORMATION
  Report Type: 
  Country: None (occurrence: None)
  Receive Date: 20050429
  Receipt Date: 20050418
  Transmission Date: 20051028
  Serious: Yes (Hospitalization)
  Sender: FDA-Public Use
  Company Number: GXKR2005US00868

PATIENT
  Age: 63 Year
  Sex: Female

DRUGS (5)
  1. PREDNISOLONE (NGX)(PREDNISOLONE) [Suspect]
     Indication: SYSTEMIC SCLEROSIS
     Dosage: 50 MG, DAILY
  2. METFORMIN HCL [Concomitant]
  3. GLYBURIDE [Concomitant]
  4. AMLODIPINE [Concomitant]
  5. QUINAPRIL HCL [Concomitant]

REACTIONS (10)
  - BLOOD CREATININE INCREASED [None]
  - HAEMOGLOBIN DECREASED [None]
  - LETHARGY [None]
  - LUNG CREPITATION [None]
  - MICROANGIOPATHIC HAEMOLYTIC ANAEMIA [None]
  - PNEUMONIA [None]
  - POLYDIPSIA [None]
  - POLYURIA [None]
  - SCLERODERMA RENAL CRISIS [None]
  - VOMITING [None]
